FAERS Safety Report 10021356 (Version 1)
Quarter: 2014Q1

REPORT INFORMATION
  Report Type: Spontaneous
  Country: US (occurrence: US)
  Receive Date: 20140319
  Receipt Date: 20140319
  Transmission Date: 20141002
  Serious: Yes (Other)
  Sender: FDA-Public Use
  Company Number: 2014SP001366

PATIENT
  Age: 46 Year
  Sex: Female
  Weight: 85.71 kg

DRUGS (5)
  1. METHOTREXATE [Suspect]
     Indication: PRODUCT USED FOR UNKNOWN INDICATION
  2. ENBREL [Suspect]
     Indication: PSORIATIC ARTHROPATHY
     Route: 058
     Dates: start: 20130422, end: 201311
  3. SINGULAIR [Concomitant]
  4. TOPAMAX [Concomitant]
  5. ROBAFEN /00048001/ [Concomitant]

REACTIONS (4)
  - Umbilical hernia [Unknown]
  - Vomiting [Recovered/Resolved]
  - Arthritis [Not Recovered/Not Resolved]
  - Urinary incontinence [Not Recovered/Not Resolved]
